FAERS Safety Report 4279902-5 (Version None)
Quarter: 2004Q1

REPORT INFORMATION
  Report Type: 
  Country: None (occurrence: None)
  Receive Date: 20040127
  Receipt Date: 20040127
  Transmission Date: 20041129
  Serious: Yes (Other)
  Sender: FDA-Public Use
  Company Number: None

PATIENT
  Sex: Female
  Weight: 63.5036 kg

DRUGS (3)
  1. PAXIL CR [Suspect]
     Indication: ANXIETY
     Dosage: 40MG  DAILY
     Dates: start: 20010803, end: 20031103
  2. PAXIL CR [Suspect]
     Indication: DEPRESSION
     Dosage: 40MG  DAILY
     Dates: start: 20010803, end: 20031103
  3. PAXIL CR [Suspect]
     Indication: OBSESSIVE-COMPULSIVE DISORDER
     Dosage: 40MG  DAILY
     Dates: start: 20010803, end: 20031103

REACTIONS (5)
  - ANXIETY [None]
  - CONVULSION [None]
  - DRUG DEPENDENCE [None]
  - NAUSEA [None]
  - VERTIGO [None]
